FAERS Safety Report 7273370-7 (Version None)
Quarter: 2011Q1

REPORT INFORMATION
  Report Type: 
  Country: None (occurrence: None)
  Receive Date: 20110203
  Receipt Date: 20100928
  Transmission Date: 20110831
  Serious: No
  Sender: FDA-Public Use
  Company Number: US-ABBOTT-10P-163-0675241-00

PATIENT
  Sex: Female
  Weight: 99.88 kg

DRUGS (3)
  1. SYNTHROID [Suspect]
     Indication: HYPOTHYROIDISM
  2. SYNTHROID [Suspect]
     Indication: HYPOTHYROIDISM
  3. SYNTHROID [Suspect]

REACTIONS (3)
  - UNEVALUABLE EVENT [None]
  - DRUG INEFFECTIVE [None]
  - BLOOD THYROID STIMULATING HORMONE INCREASED [None]
